FAERS Safety Report 5865275-0 (Version None)
Quarter: 2008Q3

REPORT INFORMATION
  Report Type: 
  Country: None (occurrence: None)
  Receive Date: 20080829
  Receipt Date: 20080626
  Transmission Date: 20090109
  Serious: No
  Sender: FDA-Public Use
  Company Number: A0734158A

PATIENT
  Age: 64 Year
  Sex: Male

DRUGS (2)
  1. BECONASE [Suspect]
     Route: 045
     Dates: start: 19920101
  2. NO CONCURRENT MEDICATION [Concomitant]

REACTIONS (6)
  - AGITATION [None]
  - ASTHENIA [None]
  - CONTUSION [None]
  - INFLUENZA LIKE ILLNESS [None]
  - TINNITUS [None]
  - WHEEZING [None]
